FAERS Safety Report 8225902 (Version 2)
Quarter: 2012Q4

REPORT INFORMATION
  Report Type: 
  Country: US (occurrence: US)
  Receive Date: 20111103
  Receipt Date: 20121015
  Transmission Date: 20130627
  Serious: Yes (Disabling, Other)
  Sender: FDA-Public Use
  Company Number: US-BRISTOL-MYERS SQUIBB COMPANY-15485766

PATIENT
  Age: 76 Year
  Sex: Male

DRUGS (6)
  1. KENALOG-40 INJ [Suspect]
     Indication: CYSTOID MACULAR OEDEMA
     Dosage: Route:Intravitreal
1DF:One 4mg dose
     Route: 031
     Dates: start: 20111017
  2. ACETYLSALICYLIC ACID [Concomitant]
  3. PRILOSEC [Concomitant]
  4. TOPROL XL [Concomitant]
  5. HYDROCHLOROTHIAZIDE [Concomitant]
  6. LIPITOR [Concomitant]

REACTIONS (2)
  - Blindness transient [Recovered/Resolved]
  - Eye inflammation [Recovered/Resolved]
